FAERS Safety Report 16942930 (Version 1)
Quarter: 2019Q4

REPORT INFORMATION
  Report Type: Spontaneous
  Country: US (occurrence: US)
  Receive Date: 20191021
  Receipt Date: 20191021
  Transmission Date: 20200122
  Serious: Yes (Death, Other)
  Sender: FDA-Public Use
  Company Number: US-BAUSCH-BL-2019-057924

PATIENT
  Age: 59 Year
  Sex: Male

DRUGS (8)
  1. IRINOTECAN [Suspect]
     Active Substance: IRINOTECAN
     Indication: OESOPHAGEAL ADENOCARCINOMA
     Dosage: THREE CYCLES
     Route: 065
  2. DOCETAXEL. [Suspect]
     Active Substance: DOCETAXEL
     Indication: OESOPHAGEAL ADENOCARCINOMA
     Route: 065
  3. CAPECITABINE. [Suspect]
     Active Substance: CAPECITABINE
     Indication: OESOPHAGEAL ADENOCARCINOMA
     Dosage: NEOADJUVANT CHEMOTHERAPY
     Route: 065
  4. BEVACIZUMAB. [Suspect]
     Active Substance: BEVACIZUMAB
     Indication: OESOPHAGEAL ADENOCARCINOMA
     Dosage: THREE CYCLES
     Route: 065
  5. BEVACIZUMAB. [Suspect]
     Active Substance: BEVACIZUMAB
     Dosage: NEOADJUVANT CHEMOTHERAPY
  6. DEXAMETHASONE. [Suspect]
     Active Substance: DEXAMETHASONE
     Indication: OESOPHAGEAL ADENOCARCINOMA
     Dosage: NEOADJUVANT CHEMOTHERAPY, 3 CYCLES
     Route: 065
  7. CISPLATIN. [Suspect]
     Active Substance: CISPLATIN
     Indication: OESOPHAGEAL ADENOCARCINOMA
     Dosage: NEOADJUVANT CHEMOTHERAPY
     Route: 065
  8. EPIRUBICIN [Suspect]
     Active Substance: EPIRUBICIN
     Indication: OESOPHAGEAL ADENOCARCINOMA
     Dosage: NEOADJUVANT CHEMOTHERAPY
     Route: 065

REACTIONS (4)
  - Haemoptysis [Fatal]
  - Vascular pseudoaneurysm [Unknown]
  - Mucosal inflammation [Unknown]
  - Recall phenomenon [Fatal]
